FAERS Safety Report 8126041-9 (Version None)
Quarter: 2012Q1

REPORT INFORMATION
  Report Type: 
  Country: None (occurrence: None)
  Receive Date: 20120209
  Receipt Date: 20120127
  Transmission Date: 20120608
  Serious: Yes (Other)
  Sender: FDA-Public Use
  Company Number: DE-ROCHE-794067

PATIENT
  Sex: Female

DRUGS (2)
  1. IBANDRONATE SODIUM [Suspect]
     Indication: BREAST CANCER METASTATIC
     Dosage: FREQUENCY:DAILY
     Route: 048
  2. IBANDRONATE SODIUM [Suspect]

REACTIONS (2)
  - INFECTED NEOPLASM [None]
  - OSTEONECROSIS OF JAW [None]
